FAERS Safety Report 14742430 (Version 1)
Quarter: 2018Q2

REPORT INFORMATION
  Report Type: Report from Study
  Country: US (occurrence: US)
  Receive Date: 20180410
  Receipt Date: 20180410
  Transmission Date: 20180711
  Serious: Yes (Death)
  Sender: FDA-Public Use
  Company Number: US-ARIAD PHARMACEUTICALS, INC-2017US009048

PATIENT
  Age: 73 Year
  Sex: Male

DRUGS (2)
  1. RANITIDINE. [Concomitant]
     Active Substance: RANITIDINE
     Indication: PROPHYLAXIS AGAINST GASTROINTESTINAL ULCER
     Dosage: UNK
     Route: 065
  2. PONATINIB [Suspect]
     Active Substance: PONATINIB
     Indication: CHRONIC MYELOID LEUKAEMIA
     Dosage: 45 MG, QD
     Route: 048
     Dates: start: 20170826

REACTIONS (8)
  - Hypophagia [Unknown]
  - Insomnia [Unknown]
  - Death [Fatal]
  - Back pain [Unknown]
  - Constipation [Unknown]
  - Sciatica [Unknown]
  - Dysgeusia [Unknown]
  - Weight decreased [Unknown]

NARRATIVE: CASE EVENT DATE: 20180401
